FAERS Safety Report 9804595 (Version 1)
Quarter: 2014Q1

REPORT INFORMATION
  Report Type: Report from Study
  Country: TR (occurrence: TR)
  Receive Date: 20140108
  Receipt Date: 20140108
  Transmission Date: 20141002
  Serious: Yes (Hospitalization)
  Sender: FDA-Public Use
  Company Number: TR-US-EMD SERONO, INC.-7260974

PATIENT
  Age: 28 Year
  Sex: Female
  Weight: 60 kg

DRUGS (1)
  1. REBIF [Suspect]
     Indication: RELAPSING-REMITTING MULTIPLE SCLEROSIS
     Route: 058
     Dates: start: 200811, end: 20131227

REACTIONS (4)
  - Asthenia [Unknown]
  - Gait disturbance [Unknown]
  - Central nervous system lesion [Not Recovered/Not Resolved]
  - Inappropriate schedule of drug administration [Unknown]
